FAERS Safety Report 24164450 (Version 2)
Quarter: 2024Q3

REPORT INFORMATION
  Report Type: Spontaneous
  Country: GB (occurrence: GB)
  Receive Date: 20240801
  Receipt Date: 20240906
  Transmission Date: 20241017
  Serious: Yes (Hospitalization, Other)
  Sender: PHARMING GROUP
  Company Number: GB-PHARMING-PHAGB2024000650

PATIENT

DRUGS (1)
  1. RUCONEST [Suspect]
     Active Substance: CONESTAT ALFA
     Indication: Product used for unknown indication
     Dosage: 4200 IU, PRN
     Route: 042
     Dates: start: 20220519

REACTIONS (2)
  - Hepatitis [Recovered/Resolved]
  - Liver abscess [Recovered/Resolved]
